FAERS Safety Report 8517040-3 (Version None)
Quarter: 2012Q3

REPORT INFORMATION
  Report Type: 
  Country: None (occurrence: None)
  Receive Date: 20120718
  Receipt Date: 20120709
  Transmission Date: 20120928
  Serious: Yes (Death, Hospitalization)
  Sender: FDA-Public Use
  Company Number: AT-SANOFI-AVENTIS-2012SA048783

PATIENT
  Age: 49 Year
  Sex: Female

DRUGS (2)
  1. PREDNISOLONE [Concomitant]
     Indication: RHEUMATOID ARTHRITIS
     Route: 048
  2. ARAVA [Suspect]
     Indication: RHEUMATOID ARTHRITIS
     Route: 048
     Dates: start: 20120413

REACTIONS (6)
  - SEPTIC SHOCK [None]
  - PNEUMONIA NECROTISING [None]
  - URINARY TRACT INFECTION BACTERIAL [None]
  - IMPAIRED HEALING [None]
  - MULTI-ORGAN FAILURE [None]
  - FUNGAL INFECTION [None]
